FAERS Safety Report 15158554 (Version 8)
Quarter: 2019Q3

REPORT INFORMATION
  Report Type: Spontaneous
  Country: FR (occurrence: FR)
  Receive Date: 20180718
  Receipt Date: 20190705
  Transmission Date: 20191004
  Serious: Yes (Death, Hospitalization, Other)
  Sender: FDA-Public Use
  Company Number: FR-PFIZER INC-2018287514

PATIENT
  Age: 64 Year
  Sex: Male
  Weight: 91 kg

DRUGS (50)
  1. AMIODARONE HCL [Concomitant]
     Active Substance: AMIODARONE HYDROCHLORIDE
     Dosage: 1 DF, DAILY
     Dates: start: 201512
  2. TAHOR [Concomitant]
     Active Substance: ATORVASTATIN CALCIUM
     Dosage: 40 MG, UNK
     Dates: start: 20140929
  3. TAHOR [Concomitant]
     Active Substance: ATORVASTATIN CALCIUM
     Dosage: 1 DF, UNK
     Route: 048
     Dates: start: 20141024
  4. DOLIPRANE [Concomitant]
     Active Substance: ACETAMINOPHEN
     Dosage: 500MG,2 DF, TID UPON NEED
     Route: 048
     Dates: start: 20140929
  5. PLAVIX [Concomitant]
     Active Substance: CLOPIDOGREL BISULFATE
     Indication: CARDIAC DISORDER
     Dosage: 75 MG, UNK
     Dates: start: 20151224
  6. PLAVIX [Concomitant]
     Active Substance: CLOPIDOGREL BISULFATE
     Dosage: 1 DF, QD
     Route: 065
     Dates: start: 20151224
  7. PLAVIX [Concomitant]
     Active Substance: CLOPIDOGREL BISULFATE
     Dosage: UNK
     Route: 065
     Dates: start: 20170603
  8. BISOPROLOL [Concomitant]
     Active Substance: BISOPROLOL
     Dosage: UNK
     Route: 065
  9. ATORVASTATINE [ATORVASTATIN] [Concomitant]
     Active Substance: ATORVASTATIN
     Dosage: UNK
     Dates: start: 20170603
  10. SIMVASTATINE [Concomitant]
     Active Substance: SIMVASTATIN
     Dosage: 20 MG, UNK
     Route: 065
     Dates: start: 20110909, end: 20140930
  11. FLECAINE LP [Concomitant]
     Active Substance: FLECAINIDE
     Dosage: 150 MG
     Dates: start: 20150413, end: 20151207
  12. DESLORATADINE. [Concomitant]
     Active Substance: DESLORATADINE
     Dosage: UNK
     Dates: start: 20170603
  13. CORDARONE [Suspect]
     Active Substance: AMIODARONE HYDROCHLORIDE
     Indication: SUPRAVENTRICULAR TACHYCARDIA
     Dosage: 2 DF, UNK
     Route: 065
     Dates: start: 20090329, end: 20090330
  14. CORDARONE [Suspect]
     Active Substance: AMIODARONE HYDROCHLORIDE
     Dosage: 200 MG, UNK (1 DF)
     Route: 065
     Dates: start: 20141004, end: 20150413
  15. CORDARONE [Suspect]
     Active Substance: AMIODARONE HYDROCHLORIDE
     Dosage: UNK
     Route: 065
     Dates: start: 20170603, end: 20170627
  16. ELIQUIS [Concomitant]
     Active Substance: APIXABAN
     Dosage: 5 MG, BID
     Route: 065
     Dates: start: 20151224
  17. PANTOPRAZOLE [Concomitant]
     Active Substance: PANTOPRAZOLE
     Dosage: 1 DF QD
     Route: 048
     Dates: start: 20151224
  18. KARDEGIC [Concomitant]
     Active Substance: ASPIRIN DL-LYSINE
     Indication: CARDIAC DISORDER
     Dosage: 75 UG, UNK
     Dates: start: 20110909
  19. KARDEGIC [Concomitant]
     Active Substance: ASPIRIN DL-LYSINE
     Dosage: UNK
     Route: 065
     Dates: start: 20110909, end: 20140930
  20. ZOLPIDEM [Concomitant]
     Active Substance: ZOLPIDEM TARTRATE
     Indication: CARDIOVASCULAR DISORDER
     Dosage: 10 MG, UNK
     Dates: start: 20151224
  21. ZOLPIDEM [Concomitant]
     Active Substance: ZOLPIDEM TARTRATE
     Dosage: 1 DF, QD
     Route: 065
     Dates: start: 20151224
  22. PANTOPRAZOLE [Concomitant]
     Active Substance: PANTOPRAZOLE
     Dosage: 1 DF, QD EVENING
     Route: 048
     Dates: start: 20140929
  23. LERCAN [Concomitant]
     Active Substance: LERCANIDIPINE
     Indication: CARDIAC DISORDER
     Dosage: 10 MG, UNK
     Dates: start: 20151224
  24. BISOPROLOL [Concomitant]
     Active Substance: BISOPROLOL
     Dosage: 1 UNK MORNING
     Dates: start: 20110909, end: 20140930
  25. ALPRAZOLAM. [Concomitant]
     Active Substance: ALPRAZOLAM
     Dosage: 1 DF, QD
     Dates: start: 20151224
  26. BISOPROLOL [Concomitant]
     Active Substance: BISOPROLOL
     Dosage: 1.25 MG, UNK
     Dates: start: 201604, end: 201604
  27. CORDARONE [Suspect]
     Active Substance: AMIODARONE HYDROCHLORIDE
     Indication: VENTRICULAR TACHYCARDIA
     Dosage: 2 DF, UNK (FOR 10 DAYS)
     Route: 065
     Dates: start: 20140929, end: 20141004
  28. CORDARONE [Suspect]
     Active Substance: AMIODARONE HYDROCHLORIDE
     Dosage: 200 MG, 1X/DAY
     Route: 065
     Dates: start: 201512, end: 2017
  29. DOLIPRANE [Concomitant]
     Active Substance: ACETAMINOPHEN
     Dosage: 500 MG, UNK
     Dates: start: 20140929
  30. STILNOX [Concomitant]
     Active Substance: ZOLPIDEM TARTRATE
     Dosage: 1 DF, QD
     Route: 048
     Dates: start: 20140929
  31. ELIQUIS [Concomitant]
     Active Substance: APIXABAN
     Indication: SUPRAVENTRICULAR TACHYCARDIA
     Dosage: 2.5 MG, BID
     Route: 065
     Dates: start: 20140929
  32. LERCAN [Concomitant]
     Active Substance: LERCANIDIPINE
     Dosage: 1 DF, QD
     Dates: start: 20151224
  33. COVERSYL [PERINDOPRIL ARGININE] [Concomitant]
     Active Substance: PERINDOPRIL ARGININE
     Dosage: UNK UNK, UNK
     Route: 065
     Dates: start: 20161205
  34. PANTOPRAZOLE [Concomitant]
     Active Substance: PANTOPRAZOLE
     Indication: CARDIAC DISORDER
     Dosage: 40 MG, UNK
     Dates: start: 20140929
  35. BISOPROLOL [Concomitant]
     Active Substance: BISOPROLOL
     Dosage: 5 MG, UNK
     Dates: start: 20151224
  36. BISOPROLOL [Concomitant]
     Active Substance: BISOPROLOL
     Dosage: 1 DF, QD
     Dates: start: 20151224
  37. CORDARONE [Suspect]
     Active Substance: AMIODARONE HYDROCHLORIDE
     Indication: ATRIAL FLUTTER
     Dosage: 3 DF, UNK
     Route: 065
     Dates: start: 20090324, end: 20090328
  38. AMIODARONE [Concomitant]
     Active Substance: AMIODARONE
     Dosage: 200 MG, QD (NOON)
     Dates: start: 20151224
  39. ALPRAZOLAM. [Concomitant]
     Active Substance: ALPRAZOLAM
     Dosage: UNK UNK, QD
     Dates: start: 20170603
  40. PERINDOPRIL [Concomitant]
     Active Substance: PERINDOPRIL
     Dosage: 4 MG, UNK
     Dates: start: 20170603
  41. NIFLUGEL [Concomitant]
     Active Substance: NIFLUMIC ACID
     Dosage: UNK
     Route: 065
     Dates: start: 20170603
  42. ZOPICLONE [Concomitant]
     Active Substance: ZOPICLONE
     Dosage: UNK
     Route: 065
     Dates: start: 201512
  43. PANTOPRAZOLE [Concomitant]
     Active Substance: PANTOPRAZOLE
     Dosage: UNK, DAILY
     Route: 065
     Dates: start: 20170603
  44. KARDEGIC [Concomitant]
     Active Substance: ASPIRIN DL-LYSINE
     Dosage: UNK
     Route: 065
     Dates: start: 20170603
  45. CYCLO 3 [MELILOTUS OFFICINALIS;RUSCUS ACULEATUS] [Concomitant]
     Dosage: UNK
     Dates: start: 20170603
  46. COVERSYL [PERINDOPRIL ARGININE] [Concomitant]
     Active Substance: PERINDOPRIL ARGININE
     Dosage: UNK UNK, UNK
     Route: 065
  47. TAHOR [Concomitant]
     Active Substance: ATORVASTATIN CALCIUM
     Dosage: 2 DF, UNK
     Route: 048
     Dates: start: 20140929
  48. STILNOX [Concomitant]
     Active Substance: ZOLPIDEM TARTRATE
     Dosage: 10 MG, UNK
     Dates: start: 20140929
  49. KARDEGIC [Concomitant]
     Active Substance: ASPIRIN DL-LYSINE
     Dosage: 1 DF, QD
     Route: 065
     Dates: start: 20151224
  50. LANSOPRAZOLE. [Concomitant]
     Active Substance: LANSOPRAZOLE
     Dosage: UNK

REACTIONS (20)
  - Cerebrovascular accident [Unknown]
  - Dyspnoea [Unknown]
  - Blood creatinine increased [Unknown]
  - Oedema peripheral [Unknown]
  - Anaemia [Unknown]
  - Diarrhoea [Unknown]
  - Renal failure [Unknown]
  - Interstitial lung disease [Fatal]
  - Acute respiratory distress syndrome [Fatal]
  - Gait disturbance [Unknown]
  - Drug eruption [Unknown]
  - Chest discomfort [Unknown]
  - Malaise [Unknown]
  - Fatigue [Unknown]
  - Acute respiratory failure [Fatal]
  - Interstitial lung disease [Unknown]
  - Respiratory failure [Unknown]
  - Hyperleukocytosis [Unknown]
  - Tachycardia [Unknown]
  - Night sweats [Unknown]

NARRATIVE: CASE EVENT DATE: 2010
